FAERS Safety Report 7872724-5 (Version None)
Quarter: 2011Q4

REPORT INFORMATION
  Report Type: 
  Country: None (occurrence: None)
  Receive Date: 20111030
  Receipt Date: 20110427
  Transmission Date: 20120403
  Serious: Yes (Other)
  Sender: FDA-Public Use
  Company Number: US-AMGEN-USASP2011022121

PATIENT
  Age: 68 Year
  Sex: Female

DRUGS (1)
  1. ENBREL [Suspect]
     Indication: ANKYLOSING SPONDYLITIS
     Dosage: 50 MG, QWK
     Dates: start: 20030101

REACTIONS (5)
  - HYPERSENSITIVITY [None]
  - SWOLLEN TONGUE [None]
  - EYE PRURITUS [None]
  - PRURITUS [None]
  - DIZZINESS [None]
